FAERS Safety Report 9701537 (Version 1)
Quarter: 2013Q4

REPORT INFORMATION
  Report Type: Report from Study
  Country: US (occurrence: US)
  Receive Date: 20131121
  Receipt Date: 20131121
  Transmission Date: 20140711
  Serious: Yes (Other)
  Sender: FDA-Public Use
  Company Number: US-NAPPMUNDI-USA-2013-0108606

PATIENT
  Age: 52 Year
  Sex: Male

DRUGS (2)
  1. OXY CR TAB [Suspect]
     Indication: PRODUCT USED FOR UNKNOWN INDICATION
     Dosage: 30 MG, Q8H
     Dates: start: 20131009
  2. OXY CR TAB [Suspect]
     Dosage: UNK
     Dates: start: 20120223

REACTIONS (1)
  - Anaphylactic reaction [Recovering/Resolving]
